FAERS Safety Report 7655461-1 (Version None)
Quarter: 2011Q3

REPORT INFORMATION
  Report Type: 
  Country: None (occurrence: None)
  Receive Date: 20110804
  Receipt Date: 20110729
  Transmission Date: 20111222
  Serious: No
  Sender: FDA-Public Use
  Company Number: US-PFIZER INC-2011173665

PATIENT
  Sex: Female
  Weight: 81.633 kg

DRUGS (5)
  1. SYNTHROID [Concomitant]
     Indication: THYROID DISORDER
     Dosage: 100 MG,DAILY
     Route: 048
  2. IBUPROFEN [Suspect]
     Indication: MIGRAINE
     Dosage: UNK MG,
  3. ANTIVERT [Suspect]
     Indication: VERTIGO
     Dosage: 25 MG, 3X/DAY
     Route: 048
  4. DIAZEPAM [Suspect]
     Indication: VERTIGO
     Dosage: 10 MG, 3X/DAY
     Route: 048
  5. LISINOPRIL [Concomitant]
     Indication: HYPERTENSION
     Dosage: 20 MG,DAILY
     Route: 048

REACTIONS (1)
  - FATIGUE [None]
